FAERS Safety Report 23725347 (Version 3)
Quarter: 2024Q2

REPORT INFORMATION
  Report Type: Spontaneous
  Country: US (occurrence: US)
  Receive Date: 20240410
  Receipt Date: 20240423
  Transmission Date: 20240715
  Serious: Yes (Hospitalization, Other)
  Sender: FDA-Public Use
  Company Number: US-APOTEX-2024AP004181

PATIENT
  Age: 64 Year
  Sex: Female

DRUGS (6)
  1. GEMZAR [Suspect]
     Active Substance: GEMCITABINE HYDROCHLORIDE
     Indication: Adjuvant therapy
     Dosage: 800-600 MG/M2 EVERY OTHER WEEK
     Route: 065
     Dates: start: 20221221, end: 20230711
  2. GEMZAR [Suspect]
     Active Substance: GEMCITABINE HYDROCHLORIDE
     Indication: Chemotherapy
     Dosage: 1,000-600 MG/M2, FIRST 2 CYCLE DAYS 1, 8, AND 15 OF 28-DAY CYCLE, CYCLES 3, AND ONWARD EVERY OTHER W
     Route: 065
     Dates: start: 202302
  3. GEMZAR [Suspect]
     Active Substance: GEMCITABINE HYDROCHLORIDE
     Indication: Adenocarcinoma pancreas
  4. TARCEVA [Suspect]
     Active Substance: ERLOTINIB HYDROCHLORIDE
     Indication: Adjuvant therapy
     Dosage: 100 MILLIGRAM, QD
     Route: 065
     Dates: start: 20221221, end: 20230711
  5. TARCEVA [Suspect]
     Active Substance: ERLOTINIB HYDROCHLORIDE
     Indication: Chemotherapy
  6. TARCEVA [Suspect]
     Active Substance: ERLOTINIB HYDROCHLORIDE
     Indication: Adenocarcinoma pancreas

REACTIONS (2)
  - Cytopenia [Unknown]
  - Pneumonitis [Recovered/Resolved]

NARRATIVE: CASE EVENT DATE: 20230101
